FAERS Safety Report 9193960 (Version 1)
Quarter: 2013Q1

REPORT INFORMATION
  Report Type: Spontaneous
  Country: US (occurrence: US)
  Receive Date: 20130327
  Receipt Date: 20130327
  Transmission Date: 20140127
  Serious: No
  Sender: FDA-Public Use
  Company Number: US-PFIZER INC-2013096407

PATIENT
  Age: 52 Year
  Sex: Female
  Weight: 47.17 kg

DRUGS (3)
  1. LYRICA [Suspect]
     Indication: NEUROPATHY PERIPHERAL
     Dosage: 75 MG, 2X/DAY
     Dates: start: 20130309, end: 20130319
  2. LYRICA [Suspect]
     Indication: PAIN
  3. LYRICA [Suspect]
     Indication: MUSCLE SPASMS

REACTIONS (4)
  - Anxiety [Unknown]
  - Insomnia [Unknown]
  - Blood pressure abnormal [Unknown]
  - Drug ineffective [Unknown]
